FAERS Safety Report 5531519-8 (Version None)
Quarter: 2007Q4

REPORT INFORMATION
  Report Type: 
  Country: None (occurrence: None)
  Receive Date: 20071203
  Receipt Date: 20071126
  Transmission Date: 20080405
  Serious: Yes (Life-Threatening)
  Sender: FDA-Public Use
  Company Number: DE-NOVOPROD-269211

PATIENT
  Sex: Male
  Weight: 74 kg

DRUGS (8)
  1. ACTRAPID NOVOLET [Suspect]
     Indication: INSULIN-REQUIRING TYPE II DIABETES MELLITUS
     Dosage: 24 U, QD
     Route: 058
     Dates: start: 20061201, end: 20071002
  2. ACTRAPID NOVOLET [Suspect]
     Dosage: 24 U, QD
     Route: 058
     Dates: start: 20071003, end: 20071021
  3. ACTRAPID NOVOLET [Suspect]
     Dosage: 24 U, QD
     Route: 058
     Dates: start: 20071022
  4. MANINIL [Concomitant]
     Dosage: 3.5 MG, QD
     Route: 048
     Dates: start: 20000101
  5. SIOFOR [Concomitant]
     Dosage: UNK, QD
     Route: 048
     Dates: start: 20000101
  6. BISOPROLOL FUMARATE [Concomitant]
     Dosage: UNK, QD
     Route: 048
  7. HYDROCHLOROTHIAZIDE [Concomitant]
     Dosage: UNK, QD
     Route: 048
  8. OMEPRAZOL                          /00661201/ [Concomitant]
     Dosage: UNK, QD
     Route: 048

REACTIONS (3)
  - ANGIOEDEMA [None]
  - BLOOD GLUCOSE INCREASED [None]
  - DERMATITIS ALLERGIC [None]
